FAERS Safety Report 6385959-8 (Version None)
Quarter: 2009Q4

REPORT INFORMATION
  Report Type: 
  Country: None (occurrence: None)
  Receive Date: 20091002
  Receipt Date: 20090423
  Transmission Date: 20100525
  Serious: No
  Sender: FDA-Public Use
  Company Number: US-ASTRAZENECA-2009UW01514

PATIENT
  Sex: Female

DRUGS (1)
  1. ARIMIDEX [Suspect]
     Indication: BREAST CANCER
     Route: 048
     Dates: start: 20080701

REACTIONS (6)
  - ARTHRITIS [None]
  - DRUG INTERACTION [None]
  - DRY SKIN [None]
  - ERYTHEMA [None]
  - INSOMNIA [None]
  - VARICOSE VEIN [None]
